FAERS Safety Report 9056611 (Version 2)
Quarter: 2013Q1

REPORT INFORMATION
  Report Type: Spontaneous
  Country: US (occurrence: US)
  Receive Date: 20130204
  Receipt Date: 20130215
  Transmission Date: 20140127
  Serious: Yes (Hospitalization, Other)
  Sender: FDA-Public Use
  Company Number: US-TARO-2013P1001376

PATIENT
  Age: 77 Year
  Sex: Male
  Weight: 90.72 kg

DRUGS (7)
  1. WARFARIN SODIUM TABLETS USP 5MG [Suspect]
     Indication: ATRIAL FIBRILLATION
     Route: 048
     Dates: start: 2010
  2. DOXAZOSIN [Concomitant]
  3. DILTIAZEM [Concomitant]
  4. TIKOSYN [Concomitant]
  5. ATORVASTATIN [Concomitant]
  6. METOPROLOL [Concomitant]
  7. ASPIRIN [Concomitant]

REACTIONS (4)
  - Cardiac ablation [Not Recovered/Not Resolved]
  - Pulmonary mass [Recovered/Resolved]
  - International normalised ratio decreased [Not Recovered/Not Resolved]
  - Product quality issue [Unknown]
